FAERS Safety Report 19639815 (Version 2)
Quarter: 2021Q4

REPORT INFORMATION
  Report Type: Spontaneous
  Country: PL (occurrence: PL)
  Receive Date: 20210730
  Receipt Date: 20211008
  Transmission Date: 20220303
  Serious: Yes (Death, Hospitalization)
  Sender: FDA-Public Use
  Company Number: PL-CELGENE-POL-20210703383

PATIENT
  Age: 74 Year
  Sex: Male

DRUGS (33)
  1. AZACITIDINE [Suspect]
     Active Substance: AZACITIDINE
     Indication: Acute myeloid leukaemia
     Route: 058
     Dates: start: 20210614
  2. VENETOCLAX [Suspect]
     Active Substance: VENETOCLAX
     Indication: Acute myeloid leukaemia
     Route: 048
     Dates: start: 20210614, end: 20210614
  3. VENETOCLAX [Suspect]
     Active Substance: VENETOCLAX
     Route: 048
     Dates: start: 20210615, end: 20210615
  4. VENETOCLAX [Suspect]
     Active Substance: VENETOCLAX
     Route: 048
     Dates: start: 20210616, end: 20210623
  5. VENETOCLAX [Suspect]
     Active Substance: VENETOCLAX
     Route: 048
     Dates: start: 20210624
  6. VENETOCLAX [Suspect]
     Active Substance: VENETOCLAX
     Route: 048
     Dates: start: 20210711
  7. PEVONEDISTAT [Suspect]
     Active Substance: PEVONEDISTAT
     Indication: Acute myeloid leukaemia
     Route: 058
     Dates: start: 20210614
  8. PEVONEDISTAT [Suspect]
     Active Substance: PEVONEDISTAT
     Route: 048
     Dates: start: 20210614, end: 20210614
  9. PEVONEDISTAT [Suspect]
     Active Substance: PEVONEDISTAT
     Route: 048
     Dates: start: 20210615, end: 20210615
  10. PEVONEDISTAT [Suspect]
     Active Substance: PEVONEDISTAT
     Route: 048
     Dates: start: 20210616, end: 20210623
  11. PEVONEDISTAT [Suspect]
     Active Substance: PEVONEDISTAT
     Route: 048
     Dates: start: 20210624
  12. PEVONEDISTAT [Suspect]
     Active Substance: PEVONEDISTAT
     Route: 048
     Dates: start: 20210711
  13. GLICLAZIDE [Concomitant]
     Active Substance: GLICLAZIDE
     Indication: Diabetes mellitus
     Route: 065
     Dates: start: 2016, end: 20210706
  14. GLUCOPHAGE XR [Concomitant]
     Active Substance: METFORMIN HYDROCHLORIDE
     Indication: Diabetes mellitus
     Route: 065
     Dates: start: 2016, end: 20210706
  15. INDAPAMIDE [Concomitant]
     Active Substance: INDAPAMIDE
     Indication: Product used for unknown indication
     Route: 065
     Dates: start: 2000
  16. AMLODIPINE BESYLATE [Concomitant]
     Active Substance: AMLODIPINE BESYLATE
     Indication: Product used for unknown indication
     Route: 065
     Dates: start: 2000
  17. LISINOPRIL [Concomitant]
     Active Substance: LISINOPRIL
     Indication: Product used for unknown indication
     Route: 065
     Dates: start: 2000
  18. BISOPROLOL FUMARATE [Concomitant]
     Active Substance: BISOPROLOL FUMARATE
     Indication: Product used for unknown indication
     Route: 065
     Dates: start: 2000
  19. SIMVASTATIN [Concomitant]
     Active Substance: SIMVASTATIN
     Indication: Product used for unknown indication
     Route: 065
     Dates: start: 2016
  20. TRANEXAMIC ACID [Concomitant]
     Active Substance: TRANEXAMIC ACID
     Indication: Product used for unknown indication
     Route: 065
     Dates: start: 20210608
  21. LEVOFLOXACIN [Concomitant]
     Active Substance: LEVOFLOXACIN
     Indication: Product used for unknown indication
     Route: 065
     Dates: start: 20210608
  22. ACYCLOVIR [Concomitant]
     Active Substance: ACYCLOVIR
     Indication: Product used for unknown indication
     Route: 065
     Dates: start: 20210608
  23. ALLOPURINOL [Concomitant]
     Active Substance: ALLOPURINOL
     Indication: Product used for unknown indication
     Route: 065
     Dates: start: 20210614, end: 20210623
  24. FUROSEMIDE [Concomitant]
     Active Substance: FUROSEMIDE
     Indication: Product used for unknown indication
     Route: 065
     Dates: start: 20210614, end: 20210623
  25. FLUCONAZOLE [Concomitant]
     Active Substance: FLUCONAZOLE
     Indication: Product used for unknown indication
     Route: 065
     Dates: start: 20210624, end: 20210704
  26. RASBURICASE [Concomitant]
     Active Substance: RASBURICASE
     Indication: Product used for unknown indication
     Route: 065
     Dates: start: 20210615, end: 20210616
  27. ONDANSETRON [Concomitant]
     Active Substance: ONDANSETRON
     Indication: Product used for unknown indication
     Route: 065
     Dates: start: 20210614, end: 20210622
  28. Solutio ringeri [Concomitant]
     Indication: Product used for unknown indication
     Route: 065
     Dates: start: 20210614, end: 20210623
  29. SODIUM CHLORIDE [Concomitant]
     Active Substance: SODIUM CHLORIDE
     Indication: Product used for unknown indication
     Route: 065
     Dates: start: 20210614, end: 20210623
  30. MAGNESIUM SULFATE [Concomitant]
     Active Substance: MAGNESIUM SULFATE
     Indication: Product used for unknown indication
     Route: 065
     Dates: start: 20210614, end: 20210623
  31. CALCIUM CHLORIDE [Concomitant]
     Active Substance: CALCIUM CHLORIDE
     Indication: Product used for unknown indication
     Route: 048
     Dates: start: 20210621, end: 20210623
  32. Metoclopramidum [Concomitant]
     Indication: Product used for unknown indication
     Route: 048
     Dates: start: 20210628
  33. POTASSIUM CHLORIDE [Concomitant]
     Active Substance: POTASSIUM CHLORIDE
     Indication: Product used for unknown indication
     Route: 065
     Dates: start: 20210614, end: 20210714

REACTIONS (1)
  - Sepsis [Fatal]

NARRATIVE: CASE EVENT DATE: 20210706
